FAERS Safety Report 5282834-7 (Version None)
Quarter: 2007Q1

REPORT INFORMATION
  Report Type: 
  Country: None (occurrence: None)
  Receive Date: 20070329
  Receipt Date: 20070329
  Transmission Date: 20070707
  Serious: Yes (Disabling)
  Sender: FDA-Public Use
  Company Number: None

PATIENT
  Age: 19 Year
  Sex: Male
  Weight: 75.7507 kg

DRUGS (2)
  1. SEROQUEL [Suspect]
     Indication: ASPERGER'S DISORDER
     Dosage: 200 MG AM PO 400 MG PM PO
     Route: 048
     Dates: start: 20061004, end: 20070327
  2. SEROQUEL [Suspect]
     Indication: INTERMITTENT EXPLOSIVE DISORDER
     Dosage: 200 MG AM PO 400 MG PM PO
     Route: 048
     Dates: start: 20061004, end: 20070327

REACTIONS (1)
  - DYSKINESIA [None]
